FAERS Safety Report 11150360 (Version 1)
Quarter: 2015Q2

REPORT INFORMATION
  Report Type: Spontaneous
  Country: FR (occurrence: FR)
  Receive Date: 20150531
  Receipt Date: 20150531
  Transmission Date: 20150821
  Serious: Yes (Death, Hospitalization)
  Sender: FDA-Public Use
  Company Number: FR-MYLANLABS-2015M1016977

PATIENT

DRUGS (5)
  1. BACLOFEN. [Suspect]
     Active Substance: BACLOFEN
     Indication: ALCOHOLISM
     Dosage: HE WAS PRESCRIBED 20MG FOUR TIMES DAILY
     Route: 048
  2. ALIMEMAZINE [Concomitant]
     Active Substance: TRIMEPRAZINE
     Indication: ALCOHOLISM
     Route: 048
  3. BACLOFEN. [Suspect]
     Active Substance: BACLOFEN
     Indication: INTENTIONAL OVERDOSE
     Dosage: UNK
     Route: 065
  4. OXAZEPAM. [Concomitant]
     Active Substance: OXAZEPAM
     Indication: ALCOHOLISM
     Route: 048
  5. BACLOFEN. [Suspect]
     Active Substance: BACLOFEN
     Indication: OFF LABEL USE

REACTIONS (7)
  - Myocardial infarction [Unknown]
  - Toxicity to various agents [Fatal]
  - Multi-organ failure [Fatal]
  - Lactic acidosis [Unknown]
  - Intentional overdose [Fatal]
  - Drug level increased [Unknown]
  - Coma [Unknown]
